FAERS Safety Report 8185676-8 (Version None)
Quarter: 2012Q1

REPORT INFORMATION
  Report Type: 
  Country: None (occurrence: None)
  Receive Date: 20120305
  Receipt Date: 20120302
  Transmission Date: 20120608
  Serious: Yes (Other)
  Sender: FDA-Public Use
  Company Number: US-BAYER-2012-021364

PATIENT
  Age: 26 Year
  Sex: Female

DRUGS (1)
  1. MAGNEVIST [Suspect]
     Indication: NUCLEAR MAGNETIC RESONANCE IMAGING
     Dosage: 20 ML, ONCE
     Dates: start: 20120302, end: 20120302

REACTIONS (4)
  - PHARYNGEAL OEDEMA [None]
  - DYSPNOEA [None]
  - CHEST DISCOMFORT [None]
  - WHEEZING [None]
